FAERS Safety Report 5347031-5 (Version None)
Quarter: 2007Q2

REPORT INFORMATION
  Report Type: 
  Country: None (occurrence: None)
  Receive Date: 20070604
  Receipt Date: 20070521
  Transmission Date: 20071010
  Serious: Yes (Hospitalization, Other)
  Sender: FDA-Public Use
  Company Number: 100#08#2007-01772

PATIENT
  Age: 5 Year
  Sex: Male

DRUGS (6)
  1. CARBOPLATIN [Suspect]
     Indication: PRIMITIVE NEUROECTODERMAL TUMOUR
     Dosage: SEE IMAGE
     Route: 042
  2. VINCRISTINE (VINCRISTINE) (VINCRISTINE) [Suspect]
     Indication: PRIMITIVE NEUROECTODERMAL TUMOUR
     Dosage: 1.5 MG/M2 (MAXIMUM DOSE 2 MG)
  3. CYCLOPHOSPHAMIDE [Suspect]
     Indication: PRIMITIVE NEUROECTODERMAL TUMOUR
     Dosage: 2.1 G/M2, TOTAL DOSE PER CYCLE 4.2 G/M2 ON DAYS 0 AND 1
     Route: 042
  4. THIOTEPA (THIOTEPA) (THIOTEPA) [Suspect]
     Indication: PRIMITIVE NEUROECTODERMAL TUMOUR
     Dosage: 300 MG/M2 ON DAYS -5, -4 AND -3
  5. ETOPOSIDE [Suspect]
     Indication: PRIMITIVE NEUROECTODERMAL TUMOUR
     Dosage: 250 MG/M2 DAYS -5, -4, AND -3
  6. GRANULOCYTE COLONY-STIMULATING FACTOR (GRANULOCYTE COLONY STIMULATING [Suspect]
     Indication: PRIMITIVE NEUROECTODERMAL TUMOUR
     Dosage: 5 UG/KG BEGINNING ON DAY 5 - UNTIL BONE MARROW RECOVERY

REACTIONS (5)
  - ASTHENIA [None]
  - BLADDER DISORDER [None]
  - GAIT DISTURBANCE [None]
  - INTESTINAL FUNCTIONAL DISORDER [None]
  - MYELITIS TRANSVERSE [None]
